FAERS Safety Report 18923663 (Version 1)
Quarter: 2021Q1

REPORT INFORMATION
  Report Type: Spontaneous
  Country: AT (occurrence: AT)
  Receive Date: 20210222
  Receipt Date: 20210222
  Transmission Date: 20210420
  Serious: Yes (Hospitalization)
  Sender: FDA-Public Use
  Company Number: NVSC2021AT036127

PATIENT
  Age: 28 Year
  Sex: Female

DRUGS (1)
  1. PARLODEL [Suspect]
     Active Substance: BROMOCRIPTINE MESYLATE
     Indication: SUPPRESSED LACTATION
     Dosage: UNK, QD
     Route: 065
     Dates: start: 200203

REACTIONS (5)
  - Nervousness [Unknown]
  - Disturbance in attention [Unknown]
  - Metabolic disorder [Unknown]
  - Hypoaesthesia [Unknown]
  - Feeling cold [Unknown]

NARRATIVE: CASE EVENT DATE: 200203
